FAERS Safety Report 20524121 (Version 7)
Quarter: 2024Q2

REPORT INFORMATION
  Report Type: Spontaneous
  Country: GB (occurrence: GB)
  Receive Date: 20220228
  Receipt Date: 20240404
  Transmission Date: 20240716
  Serious: Yes (Life-Threatening, Other)
  Sender: FDA-Public Use
  Company Number: None

PATIENT
  Age: 63 Year
  Sex: Female

DRUGS (12)
  1. DEXAMETHASONE [Suspect]
     Active Substance: DEXAMETHASONE
     Indication: Anaesthesia
     Dosage: UNK,
     Route: 042
     Dates: start: 20211129, end: 20211129
  2. TEICOPLANIN [Suspect]
     Active Substance: TEICOPLANIN
     Indication: Anaesthesia
     Dosage: (SINGLE),
     Route: 042
     Dates: start: 20211129, end: 20211129
  3. CHLORAPREP [Suspect]
     Active Substance: CHLORHEXIDINE GLUCONATE\ISOPROPYL ALCOHOL
     Indication: Anaesthesia
     Dosage: UNK(CHLORHEXIDINE GLUCONATE 20%, ISOPROPANOL 99%),
     Route: 065
     Dates: start: 20211129, end: 20211129
  4. ACETAMINOPHEN [Suspect]
     Active Substance: ACETAMINOPHEN
     Indication: Anaesthesia
     Dosage: 10-20 MILLILITER
     Route: 065
     Dates: start: 20211129, end: 20211129
  5. FENTANYL CITRATE [Suspect]
     Active Substance: FENTANYL CITRATE
     Indication: Anaesthesia
     Dosage: 100 MICROGRAM, SINGLE,
     Route: 042
     Dates: start: 20211129, end: 20211129
  6. GENTAMICIN [Suspect]
     Active Substance: GENTAMICIN
     Indication: Anaesthesia
     Dosage: 160 MILLIGRAM, SINGLE,
     Route: 042
     Dates: start: 20211129, end: 20211129
  7. LEVOBUPIVACAINE [Suspect]
     Active Substance: LEVOBUPIVACAINE
     Indication: Anaesthesia
     Dosage: 0.5 PERCENT SINGLE
     Route: 058
     Dates: start: 20211129, end: 20211129
  8. PROPOFOL [Suspect]
     Active Substance: PROPOFOL
     Indication: Anaesthesia
     Dosage: 200 MILLIGRAM, SINGLE (PROPOFOL 20MG/ML EMULSION FOR INJECTION/INFUSION)
     Route: 042
     Dates: start: 20211129, end: 20211129
  9. EPINEPHRINE [Suspect]
     Active Substance: EPINEPHRINE
     Indication: Product used for unknown indication
     Dosage: 5-10MIN OF AFTER INDUCTION OF ANAESTHESIA
     Route: 065
     Dates: start: 20211129, end: 20211129
  10. EPINEPHRINE [Suspect]
     Active Substance: EPINEPHRINE
     Indication: Product used for unknown indication
     Route: 065
     Dates: start: 20211129, end: 20211129
  11. EPINEPHRINE [Suspect]
     Active Substance: EPINEPHRINE
     Indication: Product used for unknown indication
     Dosage: UNK
     Route: 065
  12. EPINEPHRINE [Suspect]
     Active Substance: EPINEPHRINE
     Indication: Product used for unknown indication
     Dosage: 5-10MIN OF AFTER INDUCTION OF ANAESTHESIA
     Route: 042

REACTIONS (6)
  - Anaphylactic reaction [Recovered/Resolved]
  - Off label use [Unknown]
  - Rash [Unknown]
  - Product use in unapproved indication [Unknown]
  - Hypotension [Unknown]
  - Bronchospasm [Unknown]

NARRATIVE: CASE EVENT DATE: 20211129
